FAERS Safety Report 9865788 (Version 1)
Quarter: 2014Q1

REPORT INFORMATION
  Report Type: Spontaneous
  Country: US (occurrence: US)
  Receive Date: 20140203
  Receipt Date: 20140203
  Transmission Date: 20141002
  Serious: No
  Sender: FDA-Public Use
  Company Number: US-ALLERGAN-1309691US

PATIENT
  Age: 79 Year
  Sex: Female

DRUGS (9)
  1. RESTASIS [Suspect]
     Indication: OCULAR HYPERAEMIA
     Dosage: 2 GTT, BID
     Route: 047
     Dates: start: 20130620, end: 20130627
  2. RESTASIS [Suspect]
     Indication: EYE PRURITUS
  3. RESTASIS [Suspect]
     Indication: VISION BLURRED
  4. REFRESH OPTIVE ADVANCED PRESERVATIVE-FREE [Concomitant]
     Indication: OCULAR HYPERAEMIA
     Dosage: UNK
  5. REFRESH OPTIVE ADVANCED PRESERVATIVE-FREE [Concomitant]
     Indication: EYE PRURITUS
  6. REFRESH OPTIVE ADVANCED PRESERVATIVE-FREE [Concomitant]
     Indication: VISION BLURRED
  7. EYE DROPS [Concomitant]
     Indication: PRODUCT USED FOR UNKNOWN INDICATION
     Dosage: UNK
  8. LOTAMAX [Concomitant]
     Indication: PRODUCT USED FOR UNKNOWN INDICATION
  9. LESTACRAFT [Concomitant]
     Indication: PRODUCT USED FOR UNKNOWN INDICATION

REACTIONS (1)
  - Drug ineffective [Unknown]
